FAERS Safety Report 12659835 (Version 1)
Quarter: 2016Q3

REPORT INFORMATION
  Report Type: Spontaneous
  Country: US (occurrence: US)
  Receive Date: 20160817
  Receipt Date: 20160817
  Transmission Date: 20161109
  Serious: No
  Sender: FDA-Public Use
  Company Number: US-SHIRE-2016DX000076

PATIENT

DRUGS (4)
  1. KALBITOR [Suspect]
     Active Substance: ECALLANTIDE
     Indication: HEREDITARY ANGIOEDEMA
     Dosage: 30 MG, AS REQ^D
     Route: 058
  2. DANAZOL. [Concomitant]
     Active Substance: DANAZOL
     Indication: SWELLING
     Dosage: 100 MG, 1X/DAY:QD
     Route: 065
  3. FIRAZYR [Concomitant]
     Active Substance: ICATIBANT ACETATE
     Indication: PRODUCT USED FOR UNKNOWN INDICATION
     Dosage: AS REQ^D
     Route: 065
  4. DANAZOL. [Concomitant]
     Active Substance: DANAZOL
     Dosage: 300 MG, AS REQ^D
     Route: 065

REACTIONS (1)
  - Blood pressure increased [Unknown]
